FAERS Safety Report 13725476 (Version 2)
Quarter: 2018Q2

REPORT INFORMATION
  Report Type: Spontaneous
  Country: US (occurrence: US)
  Receive Date: 20170706
  Receipt Date: 20180403
  Transmission Date: 20180711
  Serious: No
  Sender: FDA-Public Use
  Company Number: US-PFIZER INC-2017288158

PATIENT
  Age: 68 Year
  Sex: Female
  Weight: 107 kg

DRUGS (3)
  1. IBRANCE [Suspect]
     Active Substance: PALBOCICLIB
     Indication: BREAST CANCER METASTATIC
     Dosage: 100 MG, CYCLIC (DAILY, IN THE MORNING FOR 21 DAYS, THEN OFF 7 DAYS)
     Route: 048
     Dates: start: 2017
  2. IBRANCE [Suspect]
     Active Substance: PALBOCICLIB
     Indication: MALIGNANT NEOPLASM PROGRESSION
  3. METFORMIN [Concomitant]
     Active Substance: METFORMIN HYDROCHLORIDE
     Indication: DIABETES MELLITUS
     Dosage: 500 MG, 2X/DAY
     Dates: start: 201701

REACTIONS (2)
  - Abdominal discomfort [Not Recovered/Not Resolved]
  - Nausea [Not Recovered/Not Resolved]

NARRATIVE: CASE EVENT DATE: 2017
